FAERS Safety Report 17418408 (Version 1)
Quarter: 2020Q1

REPORT INFORMATION
  Report Type: Spontaneous
  Country: US (occurrence: US)
  Receive Date: 20200214
  Receipt Date: 20200214
  Transmission Date: 20200409
  Serious: Yes (Other)
  Sender: FDA-Public Use
  Company Number: US-TERSERA THERAPEUTICS LLC-2019TRS001195

PATIENT

DRUGS (2)
  1. PRIALT [Suspect]
     Active Substance: ZICONOTIDE ACETATE
     Indication: NEUROPATHY PERIPHERAL
     Dosage: UNK
     Route: 037
     Dates: start: 201906
  2. MORPHINE [Suspect]
     Active Substance: MORPHINE
     Indication: PRODUCT USED FOR UNKNOWN INDICATION
     Dosage: UNK
     Route: 065
     Dates: start: 201907

REACTIONS (14)
  - Irritability [Recovered/Resolved]
  - Thrombosis [Unknown]
  - Anxiety [Recovered/Resolved]
  - Off label use [Unknown]
  - Weight decreased [Recovered/Resolved]
  - Myocardial infarction [Unknown]
  - Drug intolerance [Unknown]
  - Tinnitus [Recovered/Resolved]
  - Aggression [Unknown]
  - Headache [Recovered/Resolved]
  - Neuropathy peripheral [Unknown]
  - Oversensing [Recovered/Resolved]
  - Blood pressure increased [Recovered/Resolved]
  - Amnesia [Recovered/Resolved]

NARRATIVE: CASE EVENT DATE: 2019
